FAERS Safety Report 6891625-2 (Version None)
Quarter: 2010Q3

REPORT INFORMATION
  Report Type: 
  Country: None (occurrence: None)
  Receive Date: 20100731
  Receipt Date: 20070919
  Transmission Date: 20110219
  Serious: No
  Sender: FDA-Public Use
  Company Number: US-PFIZER INC-2007074707

PATIENT
  Sex: Female
  Weight: 99.79 kg

DRUGS (4)
  1. GABAPENTIN [Suspect]
     Indication: PRURITUS
     Dates: start: 20070401, end: 20070801
  2. LIPITOR [Concomitant]
  3. ZETIA [Concomitant]
  4. COZAAR [Concomitant]

REACTIONS (3)
  - FATIGUE [None]
  - OFF LABEL USE [None]
  - PRURITUS [None]
